FAERS Safety Report 18467028 (Version 1)
Quarter: 2020Q4

REPORT INFORMATION
  Report Type: Spontaneous
  Country: US (occurrence: US)
  Receive Date: 20201105
  Receipt Date: 20201105
  Transmission Date: 20210114
  Serious: Yes (Other)
  Sender: FDA-Public Use
  Company Number: US-AMGEN-USASP2020174001

PATIENT

DRUGS (2)
  1. MARAVIROC [Concomitant]
     Active Substance: MARAVIROC
     Dosage: UNK
  2. FILGRASTIM [Suspect]
     Active Substance: FILGRASTIM
     Indication: PROGRESSIVE MULTIFOCAL LEUKOENCEPHALOPATHY
     Dosage: UNK
     Route: 065

REACTIONS (3)
  - Intracranial pressure increased [Unknown]
  - Immune reconstitution inflammatory syndrome [Recovered/Resolved]
  - Off label use [Unknown]
